FAERS Safety Report 9034454 (Version 1)
Quarter: 2013Q1

REPORT INFORMATION
  Report Type: Spontaneous
  Country: CN (occurrence: None)
  Receive Date: 20130111
  Receipt Date: 20130111
  Transmission Date: 20140127
  Serious: Yes (Other)
  Sender: FDA-Public Use
  Company Number: VAL_01263_2013

PATIENT
  Age: 74 Year
  Sex: Male
  Weight: 82 kg

DRUGS (1)
  1. LOTENSIN /00909102/ (LOTENSIN-BENAZEPRIL HYDROCHLORIDE) (NOT SPECIFIED) [Suspect]
     Indication: ESSENTIAL HYPERTENSION
     Route: 048
     Dates: start: 20101115, end: 20101116

REACTIONS (2)
  - Oedema genital [None]
  - Oedema mouth [None]
